FAERS Safety Report 13862612 (Version 6)
Quarter: 2018Q2

REPORT INFORMATION
  Report Type: Spontaneous
  Country: IT (occurrence: IT)
  Receive Date: 20170814
  Receipt Date: 20180615
  Transmission Date: 20180711
  Serious: Yes (Hospitalization, Other)
  Sender: FDA-Public Use
  Company Number: IT-JNJFOC-20170805572

PATIENT
  Age: 51 Year
  Sex: Female

DRUGS (5)
  1. AERIUS [Suspect]
     Active Substance: DESLORATADINE
     Indication: SELF-INJURIOUS IDEATION
     Dosage: 3 DF, ONCE; IN TOTAL 3 DF, TOTAL (STRENGTH: 5 MG); IN TOTAL
     Route: 048
     Dates: start: 20170805, end: 20170805
  2. VENLAFAXINE HYDROCHLORIDE. [Suspect]
     Active Substance: VENLAFAXINE HYDROCHLORIDE
     Indication: SELF-INJURIOUS IDEATION
     Dosage: 5 DF, ONCE; IN TOTAL 5 DF, TOTAL (STRENGTH: 150 MG); IN TOTAL
     Route: 048
     Dates: start: 20170805, end: 20170805
  3. REACTINE (CETIRIZINE HYDROCHLORIDE\PSEUDOEPHEDRINE HYDROCHLORIDE) [Suspect]
     Active Substance: CETIRIZINE HYDROCHLORIDE\PSEUDOEPHEDRINE HYDROCHLORIDE
     Indication: SELF-INJURIOUS IDEATION
     Dosage: 12 DF, TOTAL (STRENGTH 5 MG/120MG); IN TOTAL
     Route: 048
     Dates: start: 20170805, end: 20170805
  4. QUETIAPINE FUMARATE. [Suspect]
     Active Substance: QUETIAPINE FUMARATE
     Indication: SELF-INJURIOUS IDEATION
     Dosage: 60 DF, ONCE IN TOTAL; IN TOTAL
     Route: 048
     Dates: start: 20170805, end: 20170805
  5. REACTINE (CETIRIZINE HYDROCHLORIDE\PSEUDOEPHEDRINE HYDROCHLORIDE) [Suspect]
     Active Substance: CETIRIZINE HYDROCHLORIDE\PSEUDOEPHEDRINE HYDROCHLORIDE
     Route: 048

REACTIONS (5)
  - Coma [Recovered/Resolved]
  - Intentional overdose [None]
  - Self-injurious ideation [Recovered/Resolved]
  - Drug abuse [Recovered/Resolved]
  - Intentional overdose [Unknown]

NARRATIVE: CASE EVENT DATE: 20170805
